FAERS Safety Report 6241084-8 (Version None)
Quarter: 2009Q2

REPORT INFORMATION
  Report Type: 
  Country: None (occurrence: None)
  Receive Date: 20090619
  Receipt Date: 20090605
  Transmission Date: 20091009
  Serious: Yes (Death)
  Sender: FDA-Public Use
  Company Number: KADN20090055

PATIENT
  Age: 74 Year
  Sex: 0

DRUGS (1)
  1. MORPHINE [Suspect]
     Indication: DRUG USE FOR UNKNOWN INDICATION
     Dosage: 1000 MG, OVER 34 HOURS, UNKNOWN
     Dates: start: 20070101, end: 20070101

REACTIONS (1)
  - DEPRESSED LEVEL OF CONSCIOUSNESS [None]
